FAERS Safety Report 16021629 (Version 2)
Quarter: 2020Q2

REPORT INFORMATION
  Report Type: Spontaneous
  Country: US (occurrence: US)
  Receive Date: 20190301
  Receipt Date: 20200602
  Transmission Date: 20200713
  Serious: No
  Sender: FDA-Public Use
  Company Number: US-ASTRAZENECA-2019SE20802

PATIENT
  Sex: Female
  Weight: 68 kg

DRUGS (3)
  1. AMLODIPINE [Concomitant]
     Active Substance: AMLODIPINE BESYLATE
     Indication: BLOOD PRESSURE MEASUREMENT
     Route: 048
  2. CRESTOR [Suspect]
     Active Substance: ROSUVASTATIN CALCIUM
     Indication: BLOOD CHOLESTEROL INCREASED
     Route: 048
     Dates: start: 2009
  3. METFORMIN [Concomitant]
     Active Substance: METFORMIN HYDROCHLORIDE
     Indication: DIABETES MELLITUS
     Dosage: 500MG IN THE MORNING, AND A HALF OF TABLET AT BEDTIME
     Route: 048

REACTIONS (13)
  - Tendonitis [Unknown]
  - Arterial occlusive disease [Unknown]
  - Adverse drug reaction [Unknown]
  - Blood glucose decreased [Unknown]
  - Product dose omission [Unknown]
  - White blood cell count increased [Unknown]
  - Urinary tract infection [Unknown]
  - Night sweats [Unknown]
  - Off label use [Unknown]
  - Drug ineffective [Not Recovered/Not Resolved]
  - Condition aggravated [Not Recovered/Not Resolved]
  - Product use in unapproved indication [Unknown]
  - Dysstasia [Unknown]
